FAERS Safety Report 7226920-0 (Version None)
Quarter: 2011Q1

REPORT INFORMATION
  Report Type: 
  Country: None (occurrence: None)
  Receive Date: 20110114
  Receipt Date: 20110104
  Transmission Date: 20110831
  Serious: Yes (Life-Threatening, Hospitalization, Other)
  Sender: FDA-Public Use
  Company Number: US-ELI_LILLY_AND_COMPANY-US201006001833

PATIENT
  Sex: Female

DRUGS (12)
  1. FORTEO [Suspect]
     Dosage: 20 UG, DAILY (1/D)
     Route: 065
  2. LEVOTHYROXINE [Concomitant]
     Dosage: 100 MG, UNKNOWN
  3. VITAMIN D [Concomitant]
     Dosage: 5000 U, UNKNOWN
  4. SYMBICORT [Concomitant]
  5. PROVENTIL-HFA [Concomitant]
  6. SERTRALINE [Concomitant]
     Dosage: 100 MG, UNKNOWN
  7. CLONIDINE [Concomitant]
     Dosage: 2 MG, UNKNOWN
  8. DARVOCET [Concomitant]
  9. FLUTICASONE PROPIONATE [Concomitant]
  10. DILTIAZEM [Concomitant]
     Dosage: 240 MG, UNKNOWN
  11. LISINOPRIL [Concomitant]
     Dosage: 10 MG, UNKNOWN
  12. SIMVASTATIN [Concomitant]
     Dosage: 40 MG, UNKNOWN

REACTIONS (8)
  - WHITE BLOOD CELL COUNT INCREASED [None]
  - PNEUMONIA [None]
  - COLONOSCOPY [None]
  - MALAISE [None]
  - DRUG DOSE OMISSION [None]
  - CHRONIC OBSTRUCTIVE PULMONARY DISEASE [None]
  - BLOOD TEST ABNORMAL [None]
  - BLOOD CALCIUM INCREASED [None]
